FAERS Safety Report 7658847-4 (Version None)
Quarter: 2011Q3

REPORT INFORMATION
  Report Type: 
  Country: None (occurrence: None)
  Receive Date: 20110805
  Receipt Date: 20110726
  Transmission Date: 20111222
  Serious: Yes (Other)
  Sender: FDA-Public Use
  Company Number: US-AMGEN-USASP2011037907

PATIENT
  Age: 54 Year
  Sex: Male

DRUGS (2)
  1. EPOGEN [Suspect]
     Indication: RENAL FAILURE CHRONIC
     Dosage: UNK
     Dates: start: 20110101, end: 20110101
  2. ARANESP [Suspect]
     Indication: RENAL FAILURE CHRONIC
     Dosage: UNK UNK, Q2WK
     Dates: start: 20110101

REACTIONS (2)
  - HAEMOGLOBIN ABNORMAL [None]
  - CORONARY ARTERY DISEASE [None]
